FAERS Safety Report 19256871 (Version 4)
Quarter: 2021Q2

REPORT INFORMATION
  Report Type: Report from Study
  Country: MX (occurrence: MX)
  Receive Date: 20210513
  Receipt Date: 20210610
  Transmission Date: 20210717
  Serious: Yes (Other)
  Sender: FDA-Public Use
  Company Number: PHHY2019MX012057

PATIENT
  Sex: Female
  Weight: 65 kg

DRUGS (4)
  1. BIFEBRAL [Concomitant]
     Indication: ARTHRALGIA
     Dosage: 0.5 DF, QD
     Route: 048
  2. EXFORGE HCT [Suspect]
     Active Substance: AMLODIPINE BESYLATE\HYDROCHLOROTHIAZIDE\VALSARTAN
     Dosage: 0.5 MG (5/160/12.6 MG)
     Route: 048
     Dates: start: 201810
  3. EXFORGE HCT [Suspect]
     Active Substance: AMLODIPINE BESYLATE\HYDROCHLOROTHIAZIDE\VALSARTAN
     Dosage: 0.5 DF, QD (STARTED APPROXIMATELY SINCE 2019) (2 YEARS AGO)
     Route: 048
     Dates: start: 2019
  4. EXFORGE HCT [Suspect]
     Active Substance: AMLODIPINE BESYLATE\HYDROCHLOROTHIAZIDE\VALSARTAN
     Indication: HYPERTENSION
     Dosage: 1 DF, QD
     Route: 048

REACTIONS (5)
  - Wrong technique in product usage process [Unknown]
  - Eructation [Recovered/Resolved]
  - Cataract [Unknown]
  - Feeling abnormal [Unknown]
  - Off label use [Unknown]

NARRATIVE: CASE EVENT DATE: 2019
